FAERS Safety Report 13350590 (Version 2)
Quarter: 2024Q2

REPORT INFORMATION
  Report Type: Spontaneous
  Country: GB (occurrence: GB)
  Receive Date: 20170320
  Receipt Date: 20240410
  Transmission Date: 20240716
  Serious: Yes (Other)
  Sender: FDA-Public Use
  Company Number: GB-BIOGEN-2017BI00374006

PATIENT
  Sex: Male

DRUGS (1)
  1. TECFIDERA [Suspect]
     Active Substance: DIMETHYL FUMARATE
     Indication: Multiple sclerosis
     Dosage: 240 MG GASTRO-RESISTANT CAPSULES (BIOGEN IDEC LTD) 56 CAPSULE 2 X 28 CAPSULES
     Route: 050

REACTIONS (1)
  - Blindness [Unknown]
